FAERS Safety Report 5152062-4 (Version None)
Quarter: 2006Q4

REPORT INFORMATION
  Report Type: 
  Country: None (occurrence: None)
  Receive Date: 20061116
  Receipt Date: 20060202
  Transmission Date: 20070319
  Serious: Yes (Hospitalization)
  Sender: FDA-Public Use
  Company Number: US-AMGEN-US167439

PATIENT
  Sex: Female

DRUGS (5)
  1. PANITUMUMAB [Suspect]
     Indication: COLORECTAL CANCER
     Route: 042
     Dates: start: 20051006
  2. AVASTIN [Suspect]
     Route: 042
  3. FLUOROURACIL [Suspect]
     Route: 042
  4. OXALIPLATIN [Concomitant]
     Route: 042
  5. LEUCOVORIN CALCIUM [Concomitant]
     Route: 042

REACTIONS (3)
  - ANOREXIA [None]
  - DEHYDRATION [None]
  - DIARRHOEA [None]
